FAERS Safety Report 22186606 (Version 1)
Quarter: 2023Q2

REPORT INFORMATION
  Report Type: Spontaneous
  Country: RU (occurrence: RU)
  Receive Date: 20230407
  Receipt Date: 20230407
  Transmission Date: 20230721
  Serious: Yes (Life-Threatening, Other)
  Sender: FDA-Public Use
  Company Number: RU-BAXTER-2023BAX017798

PATIENT
  Age: 61 Year
  Sex: Female
  Weight: 93 kg

DRUGS (8)
  1. SUPRANE [Suspect]
     Active Substance: DESFLURANE
     Indication: General anaesthesia
     Dosage: 2 VOL%
     Dates: start: 20220330, end: 20220330
  2. CEFAZOLIN SODIUM [Concomitant]
     Active Substance: CEFAZOLIN SODIUM
     Indication: Antibiotic prophylaxis
     Dosage: 1.0 G IV ONCE (STERILE)
     Route: 042
     Dates: start: 20220330, end: 20220330
  3. ATROPINE [Concomitant]
     Active Substance: ATROPINE
     Indication: Anaesthetic premedication
     Dosage: 0.5 ML IV
     Route: 042
     Dates: start: 20220330, end: 20220330
  4. CHLOROPYRAMINE [Concomitant]
     Active Substance: CHLOROPYRAMINE
     Indication: Anaesthetic premedication
     Dosage: 1.0 ML IV
     Route: 042
     Dates: start: 20220330, end: 20220330
  5. TRIMEPERIDINE [Concomitant]
     Active Substance: TRIMEPERIDINE
     Indication: Anaesthetic premedication
     Dosage: 1.0 ML OF 1% SOLUTION, IV
     Route: 042
     Dates: start: 20220330, end: 20220330
  6. SIBAZON [Concomitant]
     Indication: Induction of anaesthesia
     Dosage: 0.5% SOLUTION 2.0 ML, IV
     Route: 042
     Dates: start: 20220330, end: 20220330
  7. PROPOFOL [Concomitant]
     Active Substance: PROPOFOL
     Indication: Induction of anaesthesia
     Dosage: 100 MG (BINERGIA)
     Route: 042
     Dates: start: 20220330, end: 20220330
  8. KRUARON [Concomitant]
     Indication: Neuromuscular blocking therapy
     Dosage: 50 MG
     Route: 042
     Dates: start: 20220330, end: 20220330

REACTIONS (1)
  - Hyperaemia [Recovered/Resolved]

NARRATIVE: CASE EVENT DATE: 20220330
